FAERS Safety Report 5325391-9 (Version None)
Quarter: 2007Q2

REPORT INFORMATION
  Report Type: 
  Country: None (occurrence: None)
  Receive Date: 20070509
  Receipt Date: 20070430
  Transmission Date: 20071010
  Serious: Yes (Death)
  Sender: FDA-Public Use
  Company Number: 16399

PATIENT
  Age: 2 Year
  Sex: Male

DRUGS (41)
  1. CARBOPLATIN [Suspect]
     Indication: METASTASES TO HEART
  2. CARBOPLATIN [Suspect]
     Indication: METASTASES TO LUNG
  3. CARBOPLATIN [Suspect]
     Indication: METASTASES TO PLEURA
  4. CARBOPLATIN [Suspect]
     Indication: RHABDOMYOSARCOMA
  5. CARBOPLATIN [Suspect]
     Indication: METASTASES TO HEART
     Dosage: 500 MG/M2 PER_CYCLE
  6. CARBOPLATIN [Suspect]
     Indication: METASTASES TO LUNG
     Dosage: 500 MG/M2 PER_CYCLE
  7. CARBOPLATIN [Suspect]
     Indication: METASTASES TO PLEURA
     Dosage: 500 MG/M2 PER_CYCLE
  8. CARBOPLATIN [Suspect]
     Indication: RHABDOMYOSARCOMA
     Dosage: 500 MG/M2 PER_CYCLE
  9. EPIRUBICIN [Suspect]
     Indication: METASTASES TO HEART
  10. EPIRUBICIN [Suspect]
     Indication: METASTASES TO LUNG
  11. EPIRUBICIN [Suspect]
     Indication: METASTASES TO PLEURA
  12. EPIRUBICIN [Suspect]
     Indication: RHABDOMYOSARCOMA
  13. EPIRUBICIN [Suspect]
     Indication: METASTASES TO HEART
     Dosage: 150 MG/M2 PER _CYCLE
  14. EPIRUBICIN [Suspect]
     Indication: METASTASES TO LUNG
     Dosage: 150 MG/M2 PER _CYCLE
  15. EPIRUBICIN [Suspect]
     Indication: METASTASES TO PLEURA
     Dosage: 150 MG/M2 PER _CYCLE
  16. EPIRUBICIN [Suspect]
     Indication: RHABDOMYOSARCOMA
     Dosage: 150 MG/M2 PER _CYCLE
  17. ETOPOSIDE [Suspect]
     Indication: METASTASES TO HEART
  18. ETOPOSIDE [Suspect]
     Indication: METASTASES TO LUNG
  19. ETOPOSIDE [Suspect]
     Indication: METASTASES TO PLEURA
  20. ETOPOSIDE [Suspect]
     Indication: RHABDOMYOSARCOMA
  21. VINCRISTINE [Suspect]
     Indication: METASTASES TO HEART
  22. VINCRISTINE [Suspect]
     Indication: METASTASES TO LUNG
  23. VINCRISTINE [Suspect]
     Indication: METASTASES TO PLEURA
  24. VINCRISTINE [Suspect]
     Indication: RHABDOMYOSARCOMA
  25. VINCRISTINE [Suspect]
     Indication: METASTASES TO HEART
     Dosage: 1.5 MG/M2 PER _CYCLE
  26. VINCRISTINE [Suspect]
     Indication: METASTASES TO LUNG
     Dosage: 1.5 MG/M2 PER _CYCLE
  27. VINCRISTINE [Suspect]
     Indication: METASTASES TO PLEURA
     Dosage: 1.5 MG/M2 PER _CYCLE
  28. VINCRISTINE [Suspect]
     Indication: RHABDOMYOSARCOMA
     Dosage: 1.5 MG/M2 PER _CYCLE
  29. IFOSFAMIDE [Suspect]
     Indication: METASTASES TO HEART
  30. IFOSFAMIDE [Suspect]
     Indication: METASTASES TO LUNG
  31. IFOSFAMIDE [Suspect]
     Indication: METASTASES TO PLEURA
  32. IFOSFAMIDE [Suspect]
     Indication: RHABDOMYOSARCOMA
  33. IFOSFAMIDE [Suspect]
     Indication: METASTASES TO HEART
     Dosage: 9 G/M2
  34. IFOSFAMIDE [Suspect]
     Indication: METASTASES TO LUNG
     Dosage: 9 G/M2
  35. IFOSFAMIDE [Suspect]
     Indication: METASTASES TO PLEURA
     Dosage: 9 G/M2
  36. IFOSFAMIDE [Suspect]
     Indication: RHABDOMYOSARCOMA
     Dosage: 9 G/M2
  37. DACTINOMYCIN [Suspect]
     Indication: METASTASES TO HEART
     Dosage: 1.5 MG/M2
  38. DACTINOMYCIN [Suspect]
     Indication: METASTASES TO LUNG
     Dosage: 1.5 MG/M2
  39. DACTINOMYCIN [Suspect]
     Indication: METASTASES TO PLEURA
     Dosage: 1.5 MG/M2
  40. DACTINOMYCIN [Suspect]
     Indication: RHABDOMYOSARCOMA
     Dosage: 1.5 MG/M2
  41. ANTIBIOTICS [Concomitant]

REACTIONS (6)
  - FEBRILE NEUTROPENIA [None]
  - INTERSTITIAL LUNG DISEASE [None]
  - LOBAR PNEUMONIA [None]
  - OTOTOXICITY [None]
  - SKIN REACTION [None]
  - WEANING FAILURE [None]
